FAERS Safety Report 8875336 (Version 1)
Quarter: 2012Q4

REPORT INFORMATION
  Report Type: 
  Country: JP (occurrence: JP)
  Receive Date: 20121029
  Receipt Date: 20121029
  Transmission Date: 20130627
  Serious: Yes (Hospitalization, Other)
  Sender: FDA-Public Use
  Company Number: JP-SHIRE-ALL1-2012-04990

PATIENT
  Age: 60 Year
  Sex: Male

DRUGS (12)
  1. 405 (LANTHANUM CARBONATE) [Suspect]
     Indication: HYPERPHOSPHATAEMIA
     Dosage: UNK UNK, Unknown
     Route: 048
     Dates: start: 20120404
  2. KALIMATE [Concomitant]
     Indication: HYPERKALAEMIA
     Dosage: 2 DF, Unknown
     Route: 048
     Dates: start: 20120404, end: 20121013
  3. KALIMATE [Concomitant]
     Dosage: 2 DF, Unknown
     Route: 048
     Dates: start: 20121014
  4. OLMETEC [Concomitant]
     Indication: HYPERTENSION
     Dosage: 20 mg, Unknown
     Route: 048
     Dates: start: 20120424
  5. CARDENALIN [Concomitant]
     Indication: HYPERTENSION
     Dosage: 4 mg, Unknown
     Route: 048
     Dates: start: 20120424
  6. ALFAROL [Concomitant]
     Indication: HYPERPARATHYROIDISM SECONDARY
     Dosage: 0.5 ?g, Unknown
     Route: 048
     Dates: start: 20120529
  7. FEBURIC [Concomitant]
     Indication: HYPERURICAEMIA
     Dosage: 10 mg, Unknown
     Route: 048
     Dates: start: 20120612
  8. KREMEZIN [Concomitant]
     Indication: RENAL FAILURE CHRONIC
     Dosage: 2 g, Unknown
     Route: 048
     Dates: start: 20120612
  9. SODIUM BICARBONATE [Concomitant]
     Indication: RENAL FAILURE CHRONIC
     Dosage: 1.2 g, Unknown
     Route: 048
     Dates: start: 20120821
  10. CONIEL [Concomitant]
     Indication: HYPERTENSION
     Dosage: 4 g, Unknown
     Route: 048
     Dates: start: 20120918
  11. NESP [Concomitant]
     Indication: NEPHROGENIC ANAEMIA
     Dosage: 180 ?g, Unknown
     Route: 058
     Dates: start: 20120918, end: 20120918
  12. NESP [Concomitant]
     Dosage: 180 ?g, Unknown
     Route: 058
     Dates: start: 20121018, end: 20121018

REACTIONS (2)
  - Renal failure [Recovering/Resolving]
  - Diabetic retinopathy [Unknown]
